FAERS Safety Report 7288153-1 (Version None)
Quarter: 2011Q1

REPORT INFORMATION
  Report Type: 
  Country: None (occurrence: None)
  Receive Date: 20110211
  Receipt Date: 20110202
  Transmission Date: 20110831
  Serious: Yes (Hospitalization)
  Sender: FDA-Public Use
  Company Number: US-JNJFOC-20110106398

PATIENT
  Sex: Male
  Weight: 30.8 kg

DRUGS (14)
  1. PREDNISOLONE [Concomitant]
  2. ZINC SULFATE [Concomitant]
  3. MULTI-VITAMINS [Concomitant]
  4. SULFASALAZINE [Concomitant]
  5. FLAGYL [Concomitant]
  6. ANTIBIOTICS [Concomitant]
     Indication: CROHN'S DISEASE
  7. PROBIOTICS [Concomitant]
  8. REMICADE [Suspect]
     Indication: CROHN'S DISEASE
     Route: 042
  9. REMICADE [Suspect]
     Route: 042
  10. FOLATE [Concomitant]
  11. OMEPRAZOLE [Concomitant]
  12. IMURAN [Suspect]
     Indication: CROHN'S DISEASE
  13. IRON [Concomitant]
  14. AZATHIOPRINE [Concomitant]

REACTIONS (1)
  - VARICELLA [None]
